FAERS Safety Report 9462037 (Version 1)
Quarter: 2013Q3

REPORT INFORMATION
  Report Type: Spontaneous
  Country: US (occurrence: US)
  Receive Date: 20130816
  Receipt Date: 20130816
  Transmission Date: 20140515
  Serious: Yes (Hospitalization)
  Sender: FDA-Public Use
  Company Number: US-ABBOTT-13P-163-1131121-00

PATIENT
  Sex: Female
  Weight: 71.73 kg

DRUGS (8)
  1. HUMIRA [Suspect]
     Indication: RHEUMATOID ARTHRITIS
     Route: 058
  2. METHOTREXATE [Concomitant]
     Indication: RHEUMATOID ARTHRITIS
  3. HYDROXYCHLOROQUINE [Concomitant]
     Indication: INFLAMMATION
  4. FOLIC ACID [Concomitant]
     Indication: RHEUMATOID ARTHRITIS
  5. PREDNISONE [Concomitant]
     Indication: RHEUMATOID ARTHRITIS
  6. UNKNOWN MEDICATION [Concomitant]
     Indication: OSTEOPOROSIS
  7. VITAMIN D [Concomitant]
     Indication: VITAMIN SUPPLEMENTATION
  8. CITRACAL [Concomitant]
     Indication: PRODUCT USED FOR UNKNOWN INDICATION

REACTIONS (1)
  - Osteoarthritis [Recovered/Resolved]
